FAERS Safety Report 16159376 (Version 7)
Quarter: 2019Q3

REPORT INFORMATION
  Report Type: Report from Study
  Country: KR (occurrence: KR)
  Receive Date: 20190404
  Receipt Date: 20190808
  Transmission Date: 20191004
  Serious: Yes (Hospitalization, Other)
  Sender: FDA-Public Use
  Company Number: KR-009507513-1903KOR013254

PATIENT
  Sex: Female

DRUGS (23)
  1. PEMBROLIZUMAB. [Suspect]
     Active Substance: PEMBROLIZUMAB
     Dosage: QUANTITY: 2; DAYS 1
     Dates: start: 20190413, end: 20190413
  2. SODIUM CHLORIDE. [Concomitant]
     Active Substance: SODIUM CHLORIDE
     Dosage: 50 MILLILITER, QUANTITY: 2, DAYS:1
     Dates: start: 20190708, end: 20190708
  3. SODIUM CHLORIDE. [Concomitant]
     Active Substance: SODIUM CHLORIDE
     Dosage: 50 MILLILITER, QUANTITY: 2, DAYS: 1
     Dates: start: 20190629
  4. PEMBROLIZUMAB. [Suspect]
     Active Substance: PEMBROLIZUMAB
     Dosage: QUANTITY: 2, DAYS: 1
     Dates: start: 20190618
  5. SODIUM CHLORIDE. [Concomitant]
     Active Substance: SODIUM CHLORIDE
     Dosage: 100 MILLILITER, QUANTITY: 1, DAYS: 1
     Dates: start: 20190528, end: 20190528
  6. SODIUM CHLORIDE. [Concomitant]
     Active Substance: SODIUM CHLORIDE
     Dosage: 100 MILLILITER, QUANTITY: 1, DAYS: 1
     Dates: start: 20190708, end: 20190708
  7. SODIUM CHLORIDE. [Concomitant]
     Active Substance: SODIUM CHLORIDE
     Dosage: 50 MILLILITER, QUANTITY: 2, DAYS: 1
     Dates: start: 20180618, end: 20190618
  8. SODIUM CHLORIDE. [Concomitant]
     Active Substance: SODIUM CHLORIDE
     Dosage: 50 MILLILITER, QUANTITY: 1, DAYS: 1
     Dates: start: 20190629
  9. LIDOCAINE HCL HUONS [Concomitant]
     Dosage: QUANTITY: 5, DAYS: 1
     Dates: start: 20190313, end: 20190313
  10. PEMBROLIZUMAB. [Suspect]
     Active Substance: PEMBROLIZUMAB
     Dosage: QUANTITY: 2; DAYS 1
     Dates: start: 20190504, end: 20190504
  11. PEMBROLIZUMAB. [Suspect]
     Active Substance: PEMBROLIZUMAB
     Dosage: QUANTITY: 2, DAYS 1
     Dates: start: 20190708
  12. SODIUM CHLORIDE. [Concomitant]
     Active Substance: SODIUM CHLORIDE
     Dosage: 100 MILLILITER, QUANTITY: 1, DAYS: 1
     Dates: start: 20190313, end: 20190313
  13. SODIUM CHLORIDE. [Concomitant]
     Active Substance: SODIUM CHLORIDE
     Dosage: 50 MILLILITER BAG, QUANTITY: 2, DAYS: 1
     Dates: start: 20190528, end: 20190528
  14. SODIUM CHLORIDE. [Concomitant]
     Active Substance: SODIUM CHLORIDE
     Dosage: 100 MILLILITER, QUANTITY: 1 DAYS: 2
     Dates: start: 20190618, end: 20190618
  15. PEMBROLIZUMAB. [Suspect]
     Active Substance: PEMBROLIZUMAB
     Dosage: QUANTITY: 2, DAYS: 1
     Dates: start: 20190729
  16. SODIUM CHLORIDE. [Concomitant]
     Active Substance: SODIUM CHLORIDE
     Dosage: 100 MILLILITER, QUANTITY: 1, DAYS: 1
     Dates: start: 20190729
  17. SODIUM CHLORIDE. [Concomitant]
     Active Substance: SODIUM CHLORIDE
     Dosage: 50 MILLILITER, QUANTITY: 2, DAYS: 1
     Dates: start: 20190504, end: 20190504
  18. PEMBROLIZUMAB. [Suspect]
     Active Substance: PEMBROLIZUMAB
     Indication: OVARIAN CANCER
     Dosage: QUANTITY: 2; DAYS: 1
     Dates: start: 20190313, end: 20190313
  19. PEMBROLIZUMAB. [Suspect]
     Active Substance: PEMBROLIZUMAB
     Dosage: 100 MG/4 ML, QUANTITY: 2, DAYS: 1
     Dates: start: 20190528, end: 20190528
  20. SODIUM CHLORIDE. [Concomitant]
     Active Substance: SODIUM CHLORIDE
     Dosage: 100 MILLILITER, QUANTITY: 1, DAYS: 1
     Dates: start: 20190504, end: 20190504
  21. SODIUM CHLORIDE. [Concomitant]
     Active Substance: SODIUM CHLORIDE
     Dosage: 1000 MILLILITER, QUANTITY: 1, DAYS: 1
     Dates: start: 20190618, end: 20190618
  22. SODIUM CHLORIDE. [Concomitant]
     Active Substance: SODIUM CHLORIDE
     Dosage: 50 MILLILITER, QUANTITY: 2, DAYS: 1
     Dates: start: 20190313, end: 20190313
  23. SODIUM CHLORIDE. [Concomitant]
     Active Substance: SODIUM CHLORIDE
     Dosage: 50 MILLILITER, QUANTITY: 2, DAYS: 1
     Dates: start: 20190413, end: 20190413

REACTIONS (5)
  - Inappropriate schedule of product administration [Unknown]
  - Ascites [Unknown]
  - Product use in unapproved indication [Unknown]
  - Adverse event [Unknown]
  - Adverse event [Unknown]

NARRATIVE: CASE EVENT DATE: 201903
